FAERS Safety Report 15933414 (Version 1)
Quarter: 2019Q1

REPORT INFORMATION
  Report Type: Spontaneous
  Country: US (occurrence: US)
  Receive Date: 20190207
  Receipt Date: 20190207
  Transmission Date: 20190417
  Serious: Yes (Hospitalization)
  Sender: FDA-Public Use
  Company Number: US-HIKMA PHARMACEUTICALS USA INC.-US-H14001-19-00792

PATIENT
  Age: 24 Year
  Sex: Male

DRUGS (1)
  1. KETAMINE [Suspect]
     Active Substance: KETAMINE
     Indication: AGITATION
     Dosage: 5.1 MG/KG
     Route: 030

REACTIONS (3)
  - Hallucination, auditory [Recovered/Resolved]
  - Fear [Recovered/Resolved]
  - Paranoia [Recovered/Resolved]
